FAERS Safety Report 8302641-8 (Version None)
Quarter: 2012Q1

REPORT INFORMATION
  Report Type: 
  Country: None (occurrence: None)
  Receive Date: 20120326
  Receipt Date: 20111201
  Transmission Date: 20120608
  Serious: Yes (Hospitalization)
  Sender: FDA-Public Use
  Company Number: PHEH2011US02589

PATIENT
  Age: 68 Year
  Sex: Female

DRUGS (12)
  1. ASPIRIN [Concomitant]
  2. CALCIUM AND ERGOCALCIFEROL (CALCIUM LACTATE, CALCIUM PHOSPHATE, ERGOCA [Concomitant]
  3. LISINOPRIL [Concomitant]
  4. FOSAMAX [Concomitant]
  5. MULTI-VITAMINS [Concomitant]
  6. GLUCOSAMINE (GLUCOSAMINE) [Concomitant]
  7. TASIGNA [Suspect]
     Indication: CHRONIC MYELOID LEUKAEMIA
     Dosage: 300 MG, BID, ORAL
     Route: 048
     Dates: start: 20110720
  8. ZETIA [Concomitant]
  9. SIMVASTATIN [Concomitant]
  10. NORVASC [Concomitant]
  11. LOVAZA [Concomitant]
  12. DITROPAN XL [Concomitant]

REACTIONS (4)
  - NAUSEA [None]
  - PANCREATITIS [None]
  - VOMITING [None]
  - ABDOMINAL PAIN [None]
